FAERS Safety Report 9229083 (Version 1)
Quarter: 2013Q2

REPORT INFORMATION
  Report Type: Spontaneous
  Country: US (occurrence: US)
  Receive Date: 20130412
  Receipt Date: 20130412
  Transmission Date: 20140414
  Serious: No
  Sender: FDA-Public Use
  Company Number: US-ASTRAZENECA-2013SE20287

PATIENT
  Sex: Female

DRUGS (1)
  1. NEXIUM [Suspect]
     Indication: DYSPHAGIA
     Route: 048

REACTIONS (3)
  - Dysphagia [Unknown]
  - Malaise [Unknown]
  - Off label use [Unknown]
